FAERS Safety Report 9818536 (Version 1)
Quarter: 2014Q1

REPORT INFORMATION
  Report Type: Spontaneous
  Country: NO (occurrence: NO)
  Receive Date: 20140115
  Receipt Date: 20140115
  Transmission Date: 20141002
  Serious: Yes (Life-Threatening, Hospitalization)
  Sender: FDA-Public Use
  Company Number: NO-TEVA-455049ISR

PATIENT
  Age: 72 Year
  Sex: Male

DRUGS (38)
  1. FENTANYL [Suspect]
     Indication: SEDATION
     Dosage: 20130426-20130428: 250 MICROG/H, 20130428-20130430: 100 MICROG/H
     Route: 062
     Dates: start: 20130426, end: 20130430
  2. STESOLID [Suspect]
     Indication: CONVULSION
     Dates: start: 20130429, end: 20130503
  3. PRO-EPANUTIN [Suspect]
     Indication: CONVULSION
     Dosage: 30/4: 2000MG BOLUS, 1/5: 300MG FNE X 2, 2/5-10/5: 400MG FNE X 2, 11/5: 300MG FNE X 2, 12/5: 300MGX1
     Dates: start: 20130430, end: 20130512
  4. DEXDOR [Suspect]
     Indication: SEDATION
     Dates: start: 20130428, end: 20130501
  5. DIFLUCAN [Suspect]
     Indication: FUNGAL INFECTION
     Dosage: 6/5: 800 MG X 1, 7/5-20/5: 400 MG X 1, 21/5-22/5: 200 MG X 1
     Dates: start: 20130506, end: 20130522
  6. MIDAZOLAM [Suspect]
     Indication: SEDATION
     Dosage: 26/4-27/4: 10 MG/H, 27/4-28/4: 7 MG/H, 28/4-29/4: 3 MG/H
     Dates: start: 20130426, end: 20130429
  7. PROPOFOL [Suspect]
     Indication: CONVULSION
     Dosage: 50 MG X APPROXIMATELY 10 PER DAY
     Dates: start: 20130427, end: 20130428
  8. CATAPRESAN [Suspect]
     Indication: SEDATION
     Dates: start: 20130502, end: 20130509
  9. AMINOPHYLLIN [Suspect]
     Indication: ASTHMA
     Dosage: 50-25 MG/H
     Dates: start: 20130516, end: 20130520
  10. ANEXATE [Suspect]
     Indication: REVERSAL OF SEDATION
     Dates: start: 20130516, end: 20130516
  11. KLEXANE [Concomitant]
     Indication: THROMBOSIS PROPHYLAXIS
     Dates: start: 20130426, end: 20130427
  12. VANCOMYCIN [Concomitant]
     Indication: INFECTION
     Dates: start: 20130516, end: 20130522
  13. KAJOS [Concomitant]
     Indication: MINERAL SUPPLEMENTATION
     Dosage: FROM 20130501: 30 ML X 3, FROM 20130504: 15  ML X 2
     Route: 048
     Dates: start: 20130501, end: 20130517
  14. NALOXONE [Concomitant]
     Dates: start: 20130516, end: 20130516
  15. LAXOBERAL [Concomitant]
     Dosage: 10-15 GTT X 1-2
     Dates: start: 20130427, end: 20130522
  16. RELISTOR [Concomitant]
     Dates: start: 20130427, end: 20130430
  17. CEFUROXIM [Concomitant]
     Indication: INFECTION
     Dates: start: 20130426, end: 20130501
  18. ESIDREX [Concomitant]
     Dates: start: 20130430, end: 20130507
  19. BURINEX [Concomitant]
     Dosage: 0,5-1 MG X 3-4
     Dates: start: 20130505, end: 20130522
  20. SOMAC [Concomitant]
     Indication: PROPHYLAXIS AGAINST GASTROINTESTINAL ULCER
     Dates: start: 20130426, end: 20130522
  21. SOLU-CORTEF [Concomitant]
     Indication: ASTHMA
     Dosage: FROM 20130426: 100 MG X 2, FROM 20130509: 50 MG X 2
     Dates: start: 20130426, end: 20130521
  22. POTASSIUM CHLORIDE [Concomitant]
     Indication: MINERAL SUPPLEMENTATION
     Route: 048
     Dates: start: 20130517, end: 20130522
  23. ACTRAPID PENFILL [Concomitant]
     Indication: BLOOD GLUCOSE ABNORMAL
     Dosage: 1 IU/ML
     Dates: start: 20130426, end: 20130522
  24. RIVOTRIL [Concomitant]
     Indication: EPILEPSY
     Dates: start: 20130509, end: 20130516
  25. FRAGMIN [Concomitant]
     Indication: THROMBOSIS PROPHYLAXIS
     Dosage: 2500-5000 IU X 1
     Dates: start: 20130428, end: 20130522
  26. SINGULAIR [Concomitant]
     Indication: ASTHMA
     Dates: start: 20130513, end: 20130522
  27. NOREPINEPHRINE [Concomitant]
     Indication: VASOPRESSIVE THERAPY
     Dosage: TITRATED TO EFFECT, INTERMITTENT USE AS NEEDED
  28. KEPPRA [Concomitant]
     Indication: EPILEPSY
     Dosage: FROM 20130508: 500 MG X 2, FROM 20130510: 750 MG X 2
     Dates: start: 20130508, end: 20130522
  29. SPIRIX [Concomitant]
     Indication: DIURETIC THERAPY
     Dates: start: 20130503, end: 20130522
  30. CETIRIZINE [Concomitant]
     Indication: HYPERSENSITIVITY
     Dates: start: 20130507, end: 20130522
  31. DALACIN [Concomitant]
     Indication: INFECTION
     Dates: start: 20130428, end: 20130428
  32. AFIPRAN [Concomitant]
     Dates: start: 20130427, end: 20130504
  33. ATROVENT [Concomitant]
     Indication: ASTHMA
     Dates: start: 20130426, end: 20130522
  34. MERONEM [Concomitant]
     Indication: INFECTION
     Dates: start: 20130505, end: 20130512
  35. VENTOLINE [Concomitant]
     Indication: ASTHMA
     Dates: start: 20130426, end: 20130522
  36. TRIMETHOPRIM [Concomitant]
     Indication: INFECTION
     Route: 048
     Dates: start: 20130517, end: 20130518
  37. BACTRIM [Concomitant]
     Indication: INFECTION
     Dates: start: 20130519, end: 20130522
  38. DIAMOX [Concomitant]
     Indication: METABOLIC ALKALOSIS
     Dates: start: 20130427, end: 20130430

REACTIONS (2)
  - Coma [Recovered/Resolved]
  - Drug effect prolonged [Recovered/Resolved]
